FAERS Safety Report 5977070-2 (Version None)
Quarter: 2008Q4

REPORT INFORMATION
  Report Type: 
  Country: None (occurrence: None)
  Receive Date: 20081203
  Receipt Date: 20081124
  Transmission Date: 20090506
  Serious: Yes (Hospitalization)
  Sender: FDA-Public Use
  Company Number: US-BIOGENIDEC-2008BI024796

PATIENT
  Age: 48 Year
  Sex: Female

DRUGS (3)
  1. AVONEX [Suspect]
     Indication: MULTIPLE SCLEROSIS
     Route: 030
     Dates: start: 19990101, end: 20030901
  2. AVONEX [Suspect]
     Route: 030
     Dates: start: 20030901, end: 20080701
  3. SOMASTATIN [Concomitant]
     Indication: DRUG USE FOR UNKNOWN INDICATION
     Dates: start: 20070101

REACTIONS (2)
  - BREAST CANCER [None]
  - RADIATION SKIN INJURY [None]
